FAERS Safety Report 5353482-5 (Version None)
Quarter: 2007Q2

REPORT INFORMATION
  Report Type: 
  Country: None (occurrence: None)
  Receive Date: 20070612
  Receipt Date: 20070604
  Transmission Date: 20071010
  Serious: Yes (Other)
  Sender: FDA-Public Use
  Company Number: PHNU2007DE00949

PATIENT
  Age: 71 Year
  Sex: Male
  Weight: 95 kg

DRUGS (2)
  1. ZOLADEX [Concomitant]
     Dosage: 1 DF, Q3MO
     Route: 065
     Dates: start: 20030701
  2. ZOMETA [Suspect]
     Indication: METASTASES TO BONE
     Dosage: 4 MG, QMO
     Route: 042
     Dates: start: 20030801

REACTIONS (6)
  - BRONCHIAL CARCINOMA [None]
  - DENTAL OPERATION [None]
  - ENDODONTIC PROCEDURE [None]
  - PERIODONTAL DISEASE [None]
  - TOOTH ABSCESS [None]
  - TOOTHACHE [None]
